FAERS Safety Report 23140262 (Version 2)
Quarter: 2023Q4

REPORT INFORMATION
  Report Type: Spontaneous
  Country: JP (occurrence: JP)
  Receive Date: 20231102
  Receipt Date: 20231124
  Transmission Date: 20240110
  Serious: Yes (Hospitalization, Other)
  Sender: FDA-Public Use
  Company Number: JP-002147023-NVSJ2023JP015497

PATIENT
  Sex: Female

DRUGS (2)
  1. LETROZOLE [Suspect]
     Active Substance: LETROZOLE
     Indication: Breast cancer stage IV
     Dosage: UNK
     Route: 065
  2. ZOLEDRONIC ACID [Suspect]
     Active Substance: ZOLEDRONIC ACID
     Indication: Hypercalcaemia
     Dosage: ADMINISTERED EVERY 3 WEEKS
     Route: 065

REACTIONS (4)
  - Hypercalcaemia [Recovering/Resolving]
  - Condition aggravated [Recovering/Resolving]
  - Breast cancer stage IV [Unknown]
  - Malignant neoplasm progression [Unknown]
